FAERS Safety Report 6539441-5 (Version None)
Quarter: 2010Q1

REPORT INFORMATION
  Report Type: 
  Country: None (occurrence: None)
  Receive Date: 20100115
  Receipt Date: 20100114
  Transmission Date: 20100710
  Serious: Yes (Hospitalization)
  Sender: FDA-Public Use
  Company Number: A0839374A

PATIENT
  Age: 53 Year
  Sex: Female
  Weight: 109 kg

DRUGS (14)
  1. ALLI [Suspect]
     Indication: WEIGHT LOSS DIET
     Route: 048
     Dates: start: 20090101
  2. NEXIUM [Concomitant]
     Route: 048
  3. NASONEX [Concomitant]
  4. OXYGEN [Concomitant]
  5. CARVEDILOL [Concomitant]
     Route: 048
  6. LISINOPRIL [Concomitant]
     Route: 048
  7. TIZANIDINE HCL [Concomitant]
     Route: 048
  8. AMITRIPTYLINE [Concomitant]
     Route: 048
  9. LIPITOR [Concomitant]
  10. ALBUTEROL [Concomitant]
     Route: 055
  11. HYDROCODONE [Concomitant]
  12. ALPRAZOLAM [Concomitant]
     Route: 048
  13. SPIRONOLACTONE [Concomitant]
  14. WARFARIN [Concomitant]
     Route: 048

REACTIONS (6)
  - ARRHYTHMIA [None]
  - BLOOD PRESSURE DECREASED [None]
  - DIZZINESS [None]
  - DYSSTASIA [None]
  - FEELING ABNORMAL [None]
  - MALAISE [None]
